FAERS Safety Report 6871287-0 (Version None)
Quarter: 2010Q3

REPORT INFORMATION
  Report Type: 
  Country: None (occurrence: None)
  Receive Date: 20100723
  Receipt Date: 20100712
  Transmission Date: 20110219
  Serious: Yes (Other)
  Sender: FDA-Public Use
  Company Number: JP-PFIZER INC-2010081999

PATIENT
  Age: 74 Year
  Sex: Female

DRUGS (1)
  1. GABAPEN [Suspect]
     Indication: PAIN IN EXTREMITY
     Dosage: UNK
     Route: 048
     Dates: start: 20100630

REACTIONS (2)
  - MOUTH HAEMORRHAGE [None]
  - PAIN [None]
